FAERS Safety Report 12546825 (Version 1)
Quarter: 2016Q3

REPORT INFORMATION
  Report Type: Spontaneous
  Country: US (occurrence: US)
  Receive Date: 20160711
  Receipt Date: 20160711
  Transmission Date: 20161109
  Serious: Yes (Other)
  Sender: FDA-Public Use
  Company Number: US-SUNOVION-2016SUN001664

PATIENT
  Age: 17 Year
  Sex: Female

DRUGS (2)
  1. APTIOM [Suspect]
     Active Substance: ESLICARBAZEPINE ACETATE
     Indication: PARTIAL SEIZURES
     Dosage: UNK
     Route: 048
  2. APTIOM [Suspect]
     Active Substance: ESLICARBAZEPINE ACETATE
     Dosage: 1600 MG, QD
     Route: 048

REACTIONS (8)
  - Paraesthesia [Unknown]
  - Drug dose omission [Unknown]
  - Change in seizure presentation [Not Recovered/Not Resolved]
  - Partial seizures [Not Recovered/Not Resolved]
  - Seizure cluster [Not Recovered/Not Resolved]
  - Drug ineffective [Unknown]
  - Hyponatraemia [Unknown]
  - Inappropriate schedule of drug administration [Unknown]

NARRATIVE: CASE EVENT DATE: 2015
